FAERS Safety Report 9251221 (Version 1)
Quarter: 2013Q2

REPORT INFORMATION
  Report Type: Spontaneous
  Country: US (occurrence: US)
  Receive Date: 20130424
  Receipt Date: 20130424
  Transmission Date: 20140414
  Serious: No
  Sender: FDA-Public Use
  Company Number: US-TEVA-399574USA

PATIENT
  Age: 2 Year
  Sex: Male
  Weight: 12.03 kg

DRUGS (1)
  1. PROAIR HFA [Suspect]
     Indication: COUGH
     Route: 055
     Dates: start: 20130407

REACTIONS (10)
  - Heart rate increased [Unknown]
  - Dizziness [Unknown]
  - Crying [Unknown]
  - Screaming [Unknown]
  - Dermatitis diaper [Unknown]
  - Diarrhoea [Unknown]
  - Aggression [Unknown]
  - Mood swings [Unknown]
  - Mouth ulceration [Unknown]
  - Feeling abnormal [Unknown]
